FAERS Safety Report 14325142 (Version 3)
Quarter: 2018Q2

REPORT INFORMATION
  Report Type: Report from Study
  Country: US (occurrence: US)
  Receive Date: 20171226
  Receipt Date: 20180628
  Transmission Date: 20180711
  Serious: No
  Sender: FDA-Public Use
  Company Number: US-CLOVIS ONCOLOGY-CLO-2017-001466

PATIENT
  Sex: Female

DRUGS (1)
  1. RUBRACA [Suspect]
     Active Substance: RUCAPARIB CAMSYLATE
     Indication: OVARIAN CANCER
     Dosage: 600 MG, BID
     Route: 048
     Dates: start: 20171130

REACTIONS (21)
  - Hot flush [Unknown]
  - Arthralgia [Unknown]
  - Back pain [Unknown]
  - Anxiety [Unknown]
  - Blood alkaline phosphatase increased [Unknown]
  - Neuropathy peripheral [Recovering/Resolving]
  - Madarosis [Unknown]
  - Incision site pain [Unknown]
  - Myalgia [Unknown]
  - Nausea [Recovering/Resolving]
  - Rash [Not Recovered/Not Resolved]
  - Abdominal pain [Recovering/Resolving]
  - Hepatic enzyme increased [Not Recovered/Not Resolved]
  - Pain in extremity [Unknown]
  - Extrasystoles [Unknown]
  - Hyperaesthesia [Not Recovered/Not Resolved]
  - Dysgeusia [Not Recovered/Not Resolved]
  - Neutrophil count decreased [Unknown]
  - Alanine aminotransferase increased [Unknown]
  - Aspartate aminotransferase increased [Unknown]
  - Haemoglobin decreased [Unknown]
